FAERS Safety Report 6307138-2 (Version None)
Quarter: 2009Q3

REPORT INFORMATION
  Report Type: 
  Country: None (occurrence: None)
  Receive Date: 20090813
  Receipt Date: 20070823
  Transmission Date: 20100115
  Serious: Yes (Other)
  Sender: FDA-Public Use
  Company Number: US-ASTRAZENECA-2006UW11460

PATIENT
  Age: 21177 Day
  Sex: Female
  Weight: 105.7 kg

DRUGS (10)
  1. SEROQUEL [Suspect]
     Indication: DEPRESSION
     Dosage: 60MG, 100MG, 200MG
     Route: 048
     Dates: start: 20040101
  2. SEROQUEL [Suspect]
     Indication: BIPOLAR DISORDER
     Dosage: 60MG, 100MG, 200MG
     Route: 048
     Dates: start: 20040101
  3. SEROQUEL [Suspect]
     Indication: ANXIETY
     Dosage: 60MG, 100MG, 200MG
     Route: 048
     Dates: start: 20040101
  4. SEROQUEL [Suspect]
     Indication: INSOMNIA
     Dosage: 60MG, 100MG, 200MG
     Route: 048
     Dates: start: 20040101
  5. SEROQUEL [Suspect]
     Dosage: 100 MG HS - 200 MG HS
     Route: 048
     Dates: start: 20040924
  6. SEROQUEL [Suspect]
     Dosage: 100 MG HS - 200 MG HS
     Route: 048
     Dates: start: 20040924
  7. SEROQUEL [Suspect]
     Dosage: 100 MG HS - 200 MG HS
     Route: 048
     Dates: start: 20040924
  8. SEROQUEL [Suspect]
     Dosage: 100 MG HS - 200 MG HS
     Route: 048
     Dates: start: 20040924
  9. CLORAZEPATE / TRANXENE [Concomitant]
     Indication: ANXIETY
     Dosage: 7.5 MG BID, 7.5 MG TID, 3.75 MG FOUR TABLETS TWICE A DAY
     Dates: start: 19810101
  10. PAXIL [Concomitant]
     Indication: MAJOR DEPRESSION
     Dosage: 40 MG DAILY, 30 MG TWO PILLS DAILY, 60 MG ONCE A DAY
     Dates: start: 20040924

REACTIONS (3)
  - DIABETES MELLITUS [None]
  - DIABETIC COMA [None]
  - NEUROPATHY PERIPHERAL [None]
